FAERS Safety Report 9314128 (Version 1)
Quarter: 2013Q2

REPORT INFORMATION
  Report Type: Spontaneous
  Country: CN (occurrence: CN)
  Receive Date: 20130529
  Receipt Date: 20130529
  Transmission Date: 20140414
  Serious: Yes (Hospitalization)
  Sender: FDA-Public Use
  Company Number: CN-ELI_LILLY_AND_COMPANY-CN201305007218

PATIENT
  Age: 1 Year
  Sex: Female
  Weight: 6 kg

DRUGS (2)
  1. CEFACLOR [Suspect]
     Indication: NASOPHARYNGITIS
     Dosage: 40 MG, BID
     Route: 048
     Dates: start: 20120225, end: 20120226
  2. IBUPROFEN [Concomitant]
     Indication: PYREXIA
     Dosage: 2 ML, BID
     Dates: start: 20120225, end: 20120226

REACTIONS (3)
  - Respiratory tract infection [Not Recovered/Not Resolved]
  - Alanine aminotransferase increased [Unknown]
  - Aspartate aminotransferase increased [Unknown]
